FAERS Safety Report 17578111 (Version 1)
Quarter: 2020Q1

REPORT INFORMATION
  Report Type: Spontaneous
  Country: FR (occurrence: FR)
  Receive Date: 20200324
  Receipt Date: 20200324
  Transmission Date: 20200409
  Serious: Yes (Other)
  Sender: FDA-Public Use
  Company Number: NVSC2020FR081512

PATIENT
  Age: 67 Year
  Sex: Female

DRUGS (2)
  1. SANDOSTATINE L.P. [Suspect]
     Active Substance: OCTREOTIDE ACETATE
     Indication: HEPATIC CANCER
     Dosage: 30 UNK
     Route: 065
     Dates: start: 2000
  2. SANDOSTATINE L.P. [Suspect]
     Active Substance: OCTREOTIDE ACETATE
     Indication: COLON CANCER

REACTIONS (3)
  - Bronchitis [Unknown]
  - Wrist fracture [Unknown]
  - Pulmonary embolism [Unknown]

NARRATIVE: CASE EVENT DATE: 20191221
